FAERS Safety Report 10734199 (Version 2)
Quarter: 2015Q1

REPORT INFORMATION
  Report Type: Spontaneous
  Country: FR (occurrence: FR)
  Receive Date: 20150123
  Receipt Date: 20150130
  Transmission Date: 20150721
  Serious: Yes (Death, Life-Threatening, Other)
  Sender: FDA-Public Use
  Company Number: FR-009507513-1501FRA008468

PATIENT
  Age: 86 Year
  Sex: Male
  Weight: 89 kg

DRUGS (6)
  1. DOLIPRANE [Concomitant]
     Active Substance: ACETAMINOPHEN
  2. FUROSEMIDE. [Suspect]
     Active Substance: FUROSEMIDE
     Indication: HYPERTENSION
     Dosage: 500 MG TABLET, 1/4 X 3 DAILY
     Route: 048
  3. CLOXACILLIN [Concomitant]
     Active Substance: CLOXACILLIN
     Indication: ENDOCARDITIS
     Dosage: 3 G, QID
     Dates: start: 20120327, end: 20120515
  4. FLUINDIONE [Concomitant]
     Active Substance: FLUINDIONE
  5. RAMIPRIL. [Suspect]
     Active Substance: RAMIPRIL
     Indication: MYOCARDIAL INFARCTION
     Dosage: 2.5 MG, QD
     Route: 048
  6. GENTALLINE [Suspect]
     Active Substance: GENTAMICIN SULFATE
     Indication: ENDOCARDITIS
     Dosage: 120 MICROGRAM, BID
     Dates: start: 20120327, end: 20120413

REACTIONS (1)
  - Acute kidney injury [Fatal]

NARRATIVE: CASE EVENT DATE: 20140416
